FAERS Safety Report 4365796-6 (Version None)
Quarter: 2004Q2

REPORT INFORMATION
  Report Type: 
  Country: None (occurrence: None)
  Receive Date: 20040527
  Receipt Date: 20040413
  Transmission Date: 20050107
  Serious: Yes (Other)
  Sender: FDA-Public Use
  Company Number: TW-JNJFOC-20040502665

PATIENT
  Age: 71 Year
  Sex: Male

DRUGS (4)
  1. CHLORZOXAZONE [Suspect]
     Route: 049
  2. DIGOXIN [Concomitant]
  3. ASPIRIN [Concomitant]
  4. HYDROCHLOROTHIAZIDE [Concomitant]

REACTIONS (7)
  - BLOOD CREATININE INCREASED [None]
  - BLOOD UREA INCREASED [None]
  - HAEMATURIA [None]
  - LEUKOCYTOCLASTIC VASCULITIS [None]
  - POST INFLAMMATORY PIGMENTATION CHANGE [None]
  - PROTEINURIA [None]
  - RENAL DISORDER [None]
